FAERS Safety Report 25952100 (Version 2)
Quarter: 2025Q4

REPORT INFORMATION
  Report Type: Spontaneous
  Country: JP (occurrence: JP)
  Receive Date: 20251023
  Receipt Date: 20251217
  Transmission Date: 20260117
  Serious: Yes (Other)
  Sender: CSL BEHRING
  Company Number: JP-BEH-2025222590

PATIENT
  Age: 60 Year
  Sex: Male

DRUGS (1)
  1. HUMAN IMMUNOGLOBULIN G [Suspect]
     Active Substance: HUMAN IMMUNOGLOBULIN G
     Indication: Autoimmune nodopathy
     Dosage: 1000 MG/KG
     Route: 042

REACTIONS (2)
  - Acute myocardial infarction [Unknown]
  - Off label use [Unknown]
